FAERS Safety Report 18900360 (Version 1)
Quarter: 2021Q1

REPORT INFORMATION
  Report Type: Report from Study
  Country: CA (occurrence: CA)
  Receive Date: 20210216
  Receipt Date: 20210216
  Transmission Date: 20210420
  Serious: Yes (Other)
  Sender: FDA-Public Use
  Company Number: CA-EMD SERONO-9199713

PATIENT
  Age: 1 Year
  Sex: Male

DRUGS (2)
  1. SAIZEN [Suspect]
     Active Substance: SOMATROPIN
     Dosage: REINTRODUCED
     Route: 058
  2. SAIZEN [Suspect]
     Active Substance: SOMATROPIN
     Indication: PRODUCT USED FOR UNKNOWN INDICATION
     Route: 058
     Dates: start: 20070922

REACTIONS (4)
  - Scoliosis [Unknown]
  - Off label use [Unknown]
  - Intentional device use issue [Unknown]
  - Injection site infection [Recovered/Resolved]

NARRATIVE: CASE EVENT DATE: 20070922
